FAERS Safety Report 24687057 (Version 1)
Quarter: 2024Q4

REPORT INFORMATION
  Report Type: Spontaneous
  Country: JP (occurrence: JP)
  Receive Date: 20241202
  Receipt Date: 20241202
  Transmission Date: 20250115
  Serious: No
  Sender: PFIZER
  Company Number: JP-PFIZER INC-202400311535

PATIENT

DRUGS (2)
  1. PAXLOVID [Suspect]
     Active Substance: NIRMATRELVIR\RITONAVIR
     Indication: COVID-19 treatment
  2. CERCINE [Concomitant]
     Active Substance: DIAZEPAM
     Dosage: ONLY BEFORE BED
     Route: 048

REACTIONS (1)
  - Contraindicated product prescribed [Unknown]
